FAERS Safety Report 20460559 (Version 3)
Quarter: 2022Q2

REPORT INFORMATION
  Report Type: Report from Study
  Country: BR (occurrence: BR)
  Receive Date: 20220211
  Receipt Date: 20220407
  Transmission Date: 20220721
  Serious: Yes (Hospitalization, Congenital Anomaly, Other)
  Sender: FDA-Public Use
  Company Number: BR-SA-SAC20220210000781

PATIENT
  Age: 33 Year
  Sex: Female
  Weight: 68 kg

DRUGS (5)
  1. DUPILUMAB [Suspect]
     Active Substance: DUPILUMAB
     Indication: Sinus polyp
     Dosage: 300 MG, QOW
     Route: 058
     Dates: start: 20211001
  2. DUPILUMAB [Suspect]
     Active Substance: DUPILUMAB
     Indication: Dermatitis atopic
     Dosage: 300 MG, QOW
     Route: 058
     Dates: start: 20210820
  3. DUPILUMAB [Suspect]
     Active Substance: DUPILUMAB
     Indication: Nasal polyps
     Dosage: UNK
     Route: 001
  4. BECLOMETHASONE DIPROPIONATE [Concomitant]
     Active Substance: BECLOMETHASONE DIPROPIONATE
  5. ALBUTEROL SULFATE [Concomitant]
     Active Substance: ALBUTEROL SULFATE
     Dosage: AERODIN PUMP

REACTIONS (15)
  - Nephrolithiasis [Unknown]
  - Motion sickness [Unknown]
  - Illness [Unknown]
  - Pain [Unknown]
  - Renal cyst [Unknown]
  - Pruritus [Unknown]
  - Diarrhoea [Unknown]
  - Pain [Unknown]
  - COVID-19 [Unknown]
  - Anosmia [Unknown]
  - Nasal congestion [Unknown]
  - Dengue fever [Recovered/Resolved]
  - Product use in unapproved indication [Unknown]
  - Product dose omission issue [Unknown]
  - Incorrect route of product administration [Unknown]

NARRATIVE: CASE EVENT DATE: 20220201
